FAERS Safety Report 15574700 (Version 1)
Quarter: 2018Q4

REPORT INFORMATION
  Report Type: Spontaneous
  Country: TW (occurrence: TW)
  Receive Date: 20181101
  Receipt Date: 20181101
  Transmission Date: 20190205
  Serious: Yes (Death)
  Sender: FDA-Public Use
  Company Number: TW-PFIZER INC-2018440094

PATIENT
  Age: 40 Year
  Sex: Male

DRUGS (4)
  1. VANCOMYCIN HCL [Suspect]
     Active Substance: VANCOMYCIN HYDROCHLORIDE
     Indication: ESCHERICHIA INFECTION
  2. CEFTAZIDIME. [Suspect]
     Active Substance: CEFTAZIDIME
     Indication: ESCHERICHIA INFECTION
  3. VANCOMYCIN HCL [Suspect]
     Active Substance: VANCOMYCIN HYDROCHLORIDE
     Indication: ENDOCARDITIS
     Dosage: UNK
  4. CEFTAZIDIME. [Suspect]
     Active Substance: CEFTAZIDIME
     Indication: ENDOCARDITIS
     Dosage: UNK

REACTIONS (1)
  - Drug ineffective [Fatal]
